FAERS Safety Report 8160499-4 (Version None)
Quarter: 2012Q1

REPORT INFORMATION
  Report Type: 
  Country: None (occurrence: None)
  Receive Date: 20120223
  Receipt Date: 20120215
  Transmission Date: 20120608
  Serious: Yes (Other)
  Sender: FDA-Public Use
  Company Number: US-ABBOTT-12P-163-0904561-00

PATIENT

DRUGS (1)
  1. HUMIRA [Suspect]
     Indication: PRODUCT USED FOR UNKNOWN INDICATION

REACTIONS (7)
  - POST PROCEDURAL COMPLICATION [None]
  - FEELING ABNORMAL [None]
  - ACUTE HEPATIC FAILURE [None]
  - FATIGUE [None]
  - PAIN [None]
  - GALLBLADDER OPERATION [None]
  - CHOLELITHIASIS [None]
